FAERS Safety Report 9123405 (Version 2)
Quarter: 2013Q3

REPORT INFORMATION
  Report Type: Spontaneous
  Country: US (occurrence: US)
  Receive Date: 20130227
  Receipt Date: 20130710
  Transmission Date: 20140515
  Serious: No
  Sender: FDA-Public Use
  Company Number: US-PFIZER INC-2013067706

PATIENT
  Age: 33 Year
  Sex: Male
  Weight: 91.61 kg

DRUGS (1)
  1. BENEFIX [Suspect]
     Indication: FACTOR IX DEFICIENCY
     Dosage: 10 IU/KG, ONCE EVERY OTHER WEEK

REACTIONS (1)
  - Joint injury [Unknown]
